FAERS Safety Report 22010504 (Version 2)
Quarter: 2023Q1

REPORT INFORMATION
  Report Type: Spontaneous
  Country: BR (occurrence: BR)
  Receive Date: 20230220
  Receipt Date: 20230221
  Transmission Date: 20230418
  Serious: Yes (Other)
  Sender: FDA-Public Use
  Company Number: BR-CHEPLA-2023002097

PATIENT
  Age: 42 Year
  Sex: Male
  Weight: 105 kg

DRUGS (7)
  1. CLONAZEPAM [Suspect]
     Active Substance: CLONAZEPAM
     Indication: Anxiety
     Dosage: 0.5MG SINCE 2014, WITH A DOSAGE OF 2 TO 3 TABLETS (ACCORDING TO NEED)
     Route: 048
     Dates: start: 2014
  2. CLONAZEPAM [Suspect]
     Active Substance: CLONAZEPAM
     Indication: Panic disorder
     Dosage: 0.5MG SINCE 2014, WITH A DOSAGE OF 2 TO 3 TABLETS (ACCORDING TO NEED)
     Route: 048
     Dates: start: 2014
  3. CLONAZEPAM [Suspect]
     Active Substance: CLONAZEPAM
     Indication: Anxiety
     Dosage: BIOPAS PACKAGING
     Dates: start: 202211
  4. CLONAZEPAM [Suspect]
     Active Substance: CLONAZEPAM
     Indication: Panic disorder
     Dosage: BIOPAS PACKAGING
     Dates: start: 202211
  5. CLONAZEPAM [Suspect]
     Active Substance: CLONAZEPAM
     Indication: Anxiety
     Dosage: ROCHE PACKAGING
     Dates: start: 20230207
  6. CLONAZEPAM [Suspect]
     Active Substance: CLONAZEPAM
     Indication: Panic disorder
     Dosage: ROCHE PACKAGING
     Dates: start: 20230207
  7. DULOXETINE [Concomitant]
     Active Substance: DULOXETINE
     Indication: Anxiety
     Route: 048
     Dates: start: 2021

REACTIONS (4)
  - Drug ineffective [Recovered/Resolved]
  - Dizziness [Recovered/Resolved]
  - Hypothyroidism [Not Recovered/Not Resolved]
  - Blood cholesterol increased [Not Recovered/Not Resolved]

NARRATIVE: CASE EVENT DATE: 20221101
